FAERS Safety Report 12618535 (Version 1)
Quarter: 2016Q3

REPORT INFORMATION
  Report Type: Spontaneous
  Country: FR (occurrence: FR)
  Receive Date: 20160803
  Receipt Date: 20160803
  Transmission Date: 20161109
  Serious: Yes (Hospitalization, Other)
  Sender: FDA-Public Use
  Company Number: FR-ASTRAZENECA-2016SE81726

PATIENT
  Age: 23241 Day
  Sex: Male
  Weight: 63 kg

DRUGS (10)
  1. TAZOCILLINE [Suspect]
     Active Substance: PIPERACILLIN SODIUM\TAZOBACTAM SODIUM
     Indication: PROSTATITIS
     Route: 040
     Dates: start: 20160331, end: 20160422
  2. DIFFU K [Concomitant]
     Active Substance: POTASSIUM CHLORIDE
     Route: 048
  3. TIORFAN [Concomitant]
     Active Substance: RACECADOTRIL
     Route: 048
  4. CALCIDIA [Concomitant]
     Active Substance: CALCIUM POLYCARBOPHIL
     Route: 048
  5. INEXIUM [Suspect]
     Active Substance: ESOMEPRAZOLE
     Route: 048
     Dates: end: 20160422
  6. INEXIUM [Suspect]
     Active Substance: ESOMEPRAZOLE
     Route: 048
     Dates: start: 20160512
  7. CIPROFLOXACINE [Suspect]
     Active Substance: CIPROFLOXACIN
     Indication: PROSTATITIS
     Route: 048
     Dates: start: 20160331, end: 20160422
  8. PHOCYTAN [Concomitant]
     Active Substance: .ALPHA.-GLUCOSE-1-PHOSPHATE
     Route: 042
  9. ARIXTRA [Concomitant]
     Active Substance: FONDAPARINUX SODIUM
     Route: 058
  10. BICARBONATE SODIC [Concomitant]
     Active Substance: SODIUM BICARBONATE
     Route: 048

REACTIONS (7)
  - Pseudomonas infection [Unknown]
  - Agranulocytosis [Recovered/Resolved]
  - Rectal cancer [Unknown]
  - Neutropenia [Recovered/Resolved]
  - Prostatitis [Unknown]
  - Acute kidney injury [Unknown]
  - Pulmonary embolism [Unknown]

NARRATIVE: CASE EVENT DATE: 20160425
